FAERS Safety Report 8862313 (Version 1)
Quarter: 2012Q4

REPORT INFORMATION
  Report Type: Report from Study
  Country: BR (occurrence: BR)
  Receive Date: 20121026
  Receipt Date: 20121026
  Transmission Date: 20130627
  Serious: Yes (Other)
  Sender: FDA-Public Use
  Company Number: BR-JNJFOC-20121009104

PATIENT
  Sex: Female

DRUGS (2)
  1. RIVAROXABAN [Suspect]
     Indication: EMBOLISM VENOUS
     Route: 048
     Dates: start: 20120814
  2. RIVAROXABAN [Suspect]
     Indication: THROMBOSIS
     Route: 048
     Dates: start: 20120814

REACTIONS (1)
  - Thrombosis [Unknown]
